FAERS Safety Report 8235470-4 (Version None)
Quarter: 2012Q1

REPORT INFORMATION
  Report Type: 
  Country: None (occurrence: None)
  Receive Date: 20120322
  Receipt Date: 20120306
  Transmission Date: 20120608
  Serious: Yes (Other)
  Sender: FDA-Public Use
  Company Number: FK201200778

PATIENT
  Sex: Male

DRUGS (6)
  1. CYCLOPHOSPHAMIDE [Suspect]
     Indication: NON-HODGKIN'S LYMPHOMA STAGE IV
  2. PREDNISOLONE [Suspect]
     Indication: NON-HODGKIN'S LYMPHOMA STAGE IV
  3. BLEOMYCIN SULFATE [Suspect]
     Indication: NON-HODGKIN'S LYMPHOMA STAGE IV
  4. VINCRISTINE [Suspect]
     Indication: NON-HODGKIN'S LYMPHOMA STAGE IV
  5. DOXORUBICNI (MANUFACTURER UNKNOWN) (DOXORUBICIN) (DOXORUBICIN) [Suspect]
     Indication: NON-HODGKIN'S LYMPHOMA STAGE IV
  6. ETOPOSIDE [Suspect]
     Indication: NON-HODGKIN'S LYMPHOMA STAGE IV

REACTIONS (4)
  - CONGESTIVE CARDIOMYOPATHY [None]
  - MYELODYSPLASTIC SYNDROME [None]
  - REFRACTORY CYTOPENIA WITH MULTILINEAGE DYSPLASIA [None]
  - CARDIAC FAILURE [None]
